FAERS Safety Report 6863735-7 (Version None)
Quarter: 2010Q3

REPORT INFORMATION
  Report Type: 
  Country: None (occurrence: None)
  Receive Date: 20100721
  Receipt Date: 20080310
  Transmission Date: 20110219
  Serious: No
  Sender: FDA-Public Use
  Company Number: US-PFIZER INC-2008022033

PATIENT
  Sex: Female
  Weight: 58.636 kg

DRUGS (11)
  1. CHANTIX [Suspect]
     Indication: SMOKING CESSATION THERAPY
     Dates: start: 20070101, end: 20070101
  2. HYDROCHLOROTHIAZIDE [Concomitant]
  3. ASPIRIN [Concomitant]
  4. LIPITOR [Concomitant]
  5. ALBUTEROL [Concomitant]
  6. PREVACID [Concomitant]
  7. TOPAMAX [Concomitant]
  8. BUPAP [Concomitant]
  9. HYDROCODONE [Concomitant]
  10. DIAZEPAM [Concomitant]
  11. OXYGEN [Concomitant]

REACTIONS (1)
  - NAUSEA [None]
